FAERS Safety Report 6505011-8 (Version None)
Quarter: 2009Q4

REPORT INFORMATION
  Report Type: 
  Country: None (occurrence: None)
  Receive Date: 20091218
  Receipt Date: 20091217
  Transmission Date: 20100525
  Serious: Yes (Death, Hospitalization)
  Sender: FDA-Public Use
  Company Number: GB-WYE-G04582609

PATIENT
  Sex: Male

DRUGS (18)
  1. GEMTUZUMAB OZOGAMICIN [Suspect]
     Indication: ACUTE MYELOID LEUKAEMIA
     Dosage: 5MG, FREQUENCY UNKNOWN
     Route: 042
     Dates: start: 20090810
  2. CHLORAMPHENICOL [Concomitant]
     Dosage: UNKNOWN DOSE FOUR TIMES A DAY
     Route: 061
  3. DIGOXIN [Concomitant]
     Route: 048
  4. FLUCONAZOLE [Concomitant]
     Route: 048
  5. SIMVASTATIN [Concomitant]
     Route: 048
  6. RAMIPRIL [Concomitant]
     Route: 048
  7. BISOPROLOL [Concomitant]
     Route: 048
  8. ACYCLOVIR [Concomitant]
     Route: 048
  9. FUROSEMIDE [Concomitant]
     Route: 048
  10. CITALOPRAM HYDROBROMIDE [Concomitant]
     Route: 048
  11. CARBOXYMETHYLCELLULOSE SODIUM [Concomitant]
     Route: 031
  12. CLARITHROMYCIN [Concomitant]
     Route: 048
  13. CIPROFLOXACIN [Concomitant]
     Route: 048
  14. METRONIDAZOLE [Concomitant]
     Route: 048
  15. AUGMENTIN [Concomitant]
     Route: 048
  16. ORAMORPH SR [Concomitant]
     Dosage: 2.5 - 5MG AS REQUIRED
  17. PREDNISOLONE [Concomitant]
     Route: 048
  18. ARA-C [Concomitant]
     Dosage: UNKNOWN
     Dates: start: 20090810

REACTIONS (5)
  - CELLULITIS ORBITAL [None]
  - DISEASE PROGRESSION [None]
  - FEBRILE NEUTROPENIA [None]
  - LOWER RESPIRATORY TRACT INFECTION [None]
  - NEUTROPENIC SEPSIS [None]
